FAERS Safety Report 4268808-3 (Version None)
Quarter: 2004Q1

REPORT INFORMATION
  Report Type: 
  Country: None (occurrence: None)
  Receive Date: 20040112
  Receipt Date: 20031201
  Transmission Date: 20041129
  Serious: Yes (Death, Life-Threatening, Hospitalization)
  Sender: FDA-Public Use
  Company Number: WAES 0312BEL00003

PATIENT
  Age: 17 Year
  Sex: Male
  Weight: 45 kg

DRUGS (17)
  1. FUNGIZONE [Concomitant]
     Indication: ASPERGILLOSIS
     Route: 042
     Dates: start: 20031027, end: 20031104
  2. BLOOD CELLS, RED [Concomitant]
     Route: 041
     Dates: start: 20031021, end: 20031106
  3. CANCIDAS [Suspect]
     Indication: ASPERGILLOSIS
     Route: 042
     Dates: start: 20031103, end: 20031103
  4. CANCIDAS [Suspect]
     Route: 042
     Dates: start: 20031104, end: 20031106
  5. NEORAL [Concomitant]
     Route: 048
     Dates: start: 20030801, end: 20031106
  6. DEXTROSE [Concomitant]
     Route: 041
     Dates: start: 20031022, end: 20031106
  7. CYMEVENE IV [Concomitant]
     Indication: CYTOMEGALOVIRUS INFECTION
     Route: 042
     Dates: start: 20031005, end: 20031030
  8. ACTRAPID [Concomitant]
     Route: 042
     Dates: start: 20031021, end: 20031106
  9. SOLU-MEDROL [Concomitant]
     Route: 042
     Dates: start: 20031023, end: 20031106
  10. SOLU-MEDROL [Concomitant]
     Route: 042
     Dates: start: 20030801, end: 20031022
  11. MORPHINE [Concomitant]
     Route: 042
     Dates: start: 20031101, end: 20031102
  12. LEVOPHED [Concomitant]
     Route: 042
     Dates: start: 20031103, end: 20031106
  13. LOSEC [Concomitant]
     Route: 042
     Dates: start: 20031021, end: 20031106
  14. TAZOCIN [Concomitant]
     Route: 042
     Dates: start: 20031001, end: 20031027
  15. DIPIDOLOR [Concomitant]
     Route: 042
     Dates: start: 20031022, end: 20031031
  16. DIPRIVAN [Concomitant]
     Route: 042
     Dates: start: 20031021, end: 20031106
  17. SUFENTA [Concomitant]
     Route: 042
     Dates: start: 20031102, end: 20031105

REACTIONS (5)
  - ALANINE AMINOTRANSFERASE INCREASED [None]
  - ASPARTATE AMINOTRANSFERASE INCREASED [None]
  - BLOOD LACTIC ACID INCREASED [None]
  - BLOOD PH DECREASED [None]
  - MULTI-ORGAN FAILURE [None]
